FAERS Safety Report 4353253-2 (Version None)
Quarter: 2004Q2

REPORT INFORMATION
  Report Type: 
  Country: None (occurrence: None)
  Receive Date: 20040429
  Receipt Date: 20040420
  Transmission Date: 20050107
  Serious: Yes (Other)
  Sender: FDA-Public Use
  Company Number: ZONI001400

PATIENT
  Age: 16 Year
  Sex: Female

DRUGS (4)
  1. ZONEGRAN [Suspect]
     Indication: CONVULSION
     Dates: start: 20040101, end: 20040301
  2. MONTELUKAST SODIUM (MONTELUKAST SODIUM) [Concomitant]
  3. ALBUTEROL [Concomitant]
  4. MONTELUKAST SODIUM (MONTELUKAST SODIUM) [Concomitant]

REACTIONS (1)
  - HYPERSENSITIVITY [None]
